FAERS Safety Report 11726805 (Version 1)
Quarter: 2015Q4

REPORT INFORMATION
  Report Type: Spontaneous
  Country: US (occurrence: US)
  Receive Date: 20151112
  Receipt Date: 20151112
  Transmission Date: 20160304
  Serious: Yes (Death)
  Sender: FDA-Public Use
  Company Number: US-ROCHE-1660043

PATIENT
  Age: 64 Year
  Sex: Male
  Weight: 51.76 kg

DRUGS (1)
  1. ESBRIET [Suspect]
     Active Substance: PIRFENIDONE
     Indication: IDIOPATHIC PULMONARY FIBROSIS
     Dosage: 2403MG DAILY, 3 CAPS THRICE IN A DAY
     Route: 048
     Dates: start: 20150724

REACTIONS (1)
  - Death [Fatal]

NARRATIVE: CASE EVENT DATE: 20151024
